FAERS Safety Report 9137252 (Version 1)
Quarter: 2013Q1

REPORT INFORMATION
  Report Type: Spontaneous
  Country: US (occurrence: US)
  Receive Date: 20130219
  Receipt Date: 20130219
  Transmission Date: 20140127
  Serious: No
  Sender: FDA-Public Use
  Company Number: US-BRISTOL-MYERS SQUIBB COMPANY-17144908

PATIENT
  Age: 38 Year
  Sex: Female
  Weight: 99.77 kg

DRUGS (1)
  1. ORENCIA FOR INJ 250 MG/VIAL [Suspect]
     Indication: RHEUMATOID ARTHRITIS
     Dosage: LAST INF:24OCT12
     Route: 042
     Dates: start: 201205

REACTIONS (2)
  - Vaginal discharge [Unknown]
  - Vaginal odour [Unknown]
